FAERS Safety Report 20098466 (Version 2)
Quarter: 2023Q2

REPORT INFORMATION
  Report Type: Report from Study
  Country: DE (occurrence: DE)
  Receive Date: 20211122
  Receipt Date: 20230602
  Transmission Date: 20230721
  Serious: Yes (Hospitalization)
  Sender: FDA-Public Use
  Company Number: DE-SA-SAC20210908001193

PATIENT
  Age: 70 Year
  Sex: Female

DRUGS (8)
  1. LEVOFLOXACIN [Suspect]
     Active Substance: LEVOFLOXACIN
     Indication: Adverse event
     Dosage: UNK UNK, QD (DOSE AS REQUIRED)
     Route: 048
     Dates: start: 20210622, end: 20210625
  2. PIPERACILLIN SODIUM\TAZOBACTAM SODIUM [Suspect]
     Active Substance: PIPERACILLIN SODIUM\TAZOBACTAM SODIUM
     Indication: Adverse event
     Dosage: UNK UNK, QD/ START DATE:25-JUN-2021
     Route: 048
     Dates: end: 20210701
  3. VALACYCLOVIR HYDROCHLORIDE [Suspect]
     Active Substance: VALACYCLOVIR HYDROCHLORIDE
     Indication: Adverse event
     Dosage: UNK UNK, QD
     Route: 048
     Dates: start: 20210616
  4. AMPHOTERICIN B [Suspect]
     Active Substance: AMPHOTERICIN B
     Indication: Adverse event
     Dosage: 100 MILLILITER, QD (100 ML, QD)/ START DATE:26-JUN-2021
     Route: 048
     Dates: end: 20210706
  5. CEFPODOXIME PROXETIL [Suspect]
     Active Substance: CEFPODOXIME PROXETIL
     Indication: Adverse event
     Dosage: UNK UNK, QD (DOSE AS REQUIRED)/START DATE:02-JUL-2021
     Route: 048
     Dates: end: 20210706
  6. PANTOPRAZOLE [Concomitant]
     Active Substance: PANTOPRAZOLE
     Indication: Prophylaxis
     Dosage: 20 MILLIGRAM, QD (20 MG, QD)
     Route: 048
  7. APIXABAN [Concomitant]
     Active Substance: APIXABAN
     Indication: Prophylaxis
     Dosage: 2.5 MILLIGRAM, BID (2.5 MG, BID)
     Route: 048
  8. ACETAMINOPHEN [Concomitant]
     Active Substance: ACETAMINOPHEN
     Indication: Prophylaxis
     Dosage: 500 MG (INTERMITTENT)
     Route: 048

REACTIONS (2)
  - Mucosal inflammation [Recovered/Resolved]
  - Disease progression [Not Recovered/Not Resolved]

NARRATIVE: CASE EVENT DATE: 20210622
